FAERS Safety Report 8083544-3 (Version None)
Quarter: 2012Q1

REPORT INFORMATION
  Report Type: 
  Country: None (occurrence: None)
  Receive Date: 20120127
  Receipt Date: 20110118
  Transmission Date: 20120608
  Serious: No
  Sender: FDA-Public Use
  Company Number: US-ABBOTT-11P-163-0698649-00

PATIENT
  Age: 62 Year
  Sex: Male

DRUGS (4)
  1. GENERIC ZOCOR [Concomitant]
     Indication: BLOOD CHOLESTEROL INCREASED
     Route: 048
     Dates: end: 20110114
  2. PRINIVIL [Concomitant]
     Indication: HYPERTENSION
     Dosage: DAILY
     Route: 048
  3. LEVOXYL [Concomitant]
     Indication: THYROID DISORDER
     Dosage: DAILY
     Route: 048
  4. HUMIRA [Suspect]
     Indication: CROHN'S DISEASE
     Dates: start: 20100901

REACTIONS (4)
  - PYREXIA [None]
  - NASOPHARYNGITIS [None]
  - MYALGIA [None]
  - CROHN'S DISEASE [None]
